FAERS Safety Report 5006968-7 (Version None)
Quarter: 2006Q2

REPORT INFORMATION
  Report Type: 
  Country: None (occurrence: None)
  Receive Date: 20060516
  Receipt Date: 20060428
  Transmission Date: 20061013
  Serious: Yes (Death)
  Sender: FDA-Public Use
  Company Number: GR200604004427

PATIENT
  Age: 74 Year
  Sex: Male
  Weight: 86 kg

DRUGS (4)
  1. OLANZAPINE [Suspect]
     Indication: BIPOLAR DISORDER
     Dosage: 10 MG, DAILY (1/D), ORAL
     Route: 048
     Dates: start: 20030922, end: 20031219
  2. EFFEXOR [Concomitant]
  3. SEROQUEL [Concomitant]
  4. MILITHIN (LITHIUM CARBONATE) [Concomitant]

REACTIONS (1)
  - DEATH [None]
